FAERS Safety Report 7998582-6 (Version None)
Quarter: 2011Q4

REPORT INFORMATION
  Report Type: 
  Country: None (occurrence: None)
  Receive Date: 20111221
  Receipt Date: 20111213
  Transmission Date: 20120403
  Serious: Yes (Death, Hospitalization, Other)
  Sender: FDA-Public Use
  Company Number: US-ACTELION-A-US2011-58166

PATIENT

DRUGS (6)
  1. REVATIO [Concomitant]
  2. ADCIRCA [Concomitant]
  3. LASIX [Concomitant]
  4. TRACLEER [Suspect]
     Indication: PULMONARY ARTERIAL HYPERTENSION
     Dosage: 125 MG, BID
     Route: 048
     Dates: start: 20070412, end: 20111123
  5. COUMADIN [Concomitant]
  6. OXYGEN [Concomitant]

REACTIONS (9)
  - CARDIAC FAILURE CONGESTIVE [None]
  - VENTRICULAR TACHYCARDIA [None]
  - ACUTE MYOCARDIAL INFARCTION [None]
  - DYSPNOEA [None]
  - SINUS TACHYCARDIA [None]
  - ATRIAL TACHYCARDIA [None]
  - SMALL INTESTINAL OBSTRUCTION [None]
  - PULMONARY ARTERIAL HYPERTENSION [None]
  - HYPOXIA [None]
